FAERS Safety Report 20623849 (Version 1)
Quarter: 2022Q1

REPORT INFORMATION
  Report Type: Spontaneous
  Country: CA (occurrence: CA)
  Receive Date: 20220322
  Receipt Date: 20220322
  Transmission Date: 20220423
  Serious: Yes (Hospitalization)
  Sender: FDA-Public Use
  Company Number: CA-NAPPMUNDI-GBR-2022-0095905

PATIENT
  Age: 62 Year
  Sex: Female

DRUGS (23)
  1. HYDROMORPHONE HYDROCHLORIDE [Suspect]
     Active Substance: HYDROMORPHONE HYDROCHLORIDE
     Indication: Product used for unknown indication
     Dosage: UNK
     Route: 065
  2. PREGABALIN [Suspect]
     Active Substance: PREGABALIN
     Indication: Product used for unknown indication
     Dosage: 50 MG, DAILY
     Route: 065
  3. DILAUDID [Concomitant]
     Active Substance: HYDROMORPHONE HYDROCHLORIDE
     Dosage: 4 MG, UNK
     Route: 065
  4. ACETAMINOPHEN [Concomitant]
     Active Substance: ACETAMINOPHEN
     Dosage: 30 MG, UNK
     Route: 065
  5. LACTOBACILLUS ACIDOPHILUS [Concomitant]
     Active Substance: LACTOBACILLUS ACIDOPHILUS
     Dosage: UNK, DAILY
     Route: 065
  6. ASPIRIN                            /00002701/ [Concomitant]
     Dosage: 81 MG, DAILY
     Route: 065
  7. AZITHROMYCIN [Concomitant]
     Active Substance: AZITHROMYCIN
     Indication: Prophylaxis
     Dosage: 250 MG, UNK
     Route: 065
  8. CALCIUM [Concomitant]
     Active Substance: CALCIUM
     Dosage: 1 G, DAILY
     Route: 065
  9. COVERSYL                           /00790703/ [Concomitant]
     Dosage: 4 MG, UNK
     Route: 065
  10. CRESTOR [Concomitant]
     Active Substance: ROSUVASTATIN CALCIUM
     Dosage: 40 MG, DAILY
     Route: 065
  11. DEFLAZACORT [Concomitant]
     Active Substance: DEFLAZACORT
     Dosage: 6 MG, TID
     Route: 065
  12. ERYTHROMYCIN [Concomitant]
     Active Substance: ERYTHROMYCIN
     Indication: Wound
     Dosage: UNK
     Route: 065
  13. INDACATEROL MALEATE [Concomitant]
     Active Substance: INDACATEROL MALEATE
     Dosage: 75 MCG, UNK
     Route: 065
  14. JANUVIA [Concomitant]
     Active Substance: SITAGLIPTIN PHOSPHATE
     Dosage: 100 MG, DAILY
     Route: 065
  15. LANTUS [Concomitant]
     Active Substance: INSULIN GLARGINE
     Dosage: 10 IU, DAILY
     Route: 065
  16. METOPROLOL [Concomitant]
     Active Substance: METOPROLOL
     Dosage: 12.5 MG, BID
     Route: 065
  17. SODIUM CHLORIDE [Concomitant]
     Active Substance: SODIUM CHLORIDE
     Dosage: UNK, DAILY
     Route: 065
  18. NITROGLYCERIN [Concomitant]
     Active Substance: NITROGLYCERIN
     Dosage: UNK, PRN
     Route: 060
  19. PANTOLOC                           /01263201/ [Concomitant]
     Dosage: 40 MG, BID
     Route: 065
  20. RABEPRAZOLE SODIUM [Concomitant]
     Active Substance: RABEPRAZOLE SODIUM
     Dosage: 20 MG, BID
     Route: 065
  21. RISEDRONATE SODIUM [Concomitant]
     Active Substance: RISEDRONATE SODIUM
     Dosage: 150 MG, MONTHLY
     Route: 065
  22. ALBUTEROL [Concomitant]
     Active Substance: ALBUTEROL
     Dosage: UNK, PRN
     Route: 065
  23. VITAMIN D                          /00107901/ [Concomitant]
     Dosage: 1000 IU, DAILY
     Route: 065

REACTIONS (2)
  - Blood potassium abnormal [Recovered/Resolved]
  - Blood test abnormal [Recovered/Resolved]
